FAERS Safety Report 9466418 (Version 1)
Quarter: 2013Q3

REPORT INFORMATION
  Report Type: Report from Study
  Country: US (occurrence: US)
  Receive Date: 20130820
  Receipt Date: 20130820
  Transmission Date: 20140515
  Serious: Yes (Congenital Anomaly)
  Sender: FDA-Public Use
  Company Number: US-TEVA-427381USA

PATIENT
  Sex: Female

DRUGS (5)
  1. LAMIVUDINE AND ZIDOVUDINE [Suspect]
     Route: 065
  2. NEVIRAPINE [Suspect]
     Route: 065
  3. ZIDOVUDINE [Suspect]
     Route: 065
  4. ZIDOVUDINE [Suspect]
     Dosage: 1 MG/KG/HR
     Route: 042
     Dates: start: 20110327, end: 20110327
  5. VALPROIC ACID [Suspect]
     Route: 065

REACTIONS (1)
  - Polydactyly [Unknown]
